FAERS Safety Report 9684725 (Version 1)
Quarter: 2013Q4

REPORT INFORMATION
  Report Type: Spontaneous
  Country: US (occurrence: US)
  Receive Date: 20131112
  Receipt Date: 20131112
  Transmission Date: 20140711
  Serious: Yes (Other)
  Sender: FDA-Public Use
  Company Number: ALCN2013US005610

PATIENT
  Sex: Female
  Weight: 68.27 kg

DRUGS (2)
  1. SIMBRINZA [Suspect]
     Dosage: 1 DF, BID
     Route: 047
     Dates: start: 20130815, end: 20131015
  2. LATANOPROST [Concomitant]
     Dosage: 1 DF, QHS
     Route: 047
     Dates: start: 19990225, end: 20131016

REACTIONS (3)
  - Fall [Recovered/Resolved]
  - Dizziness [Recovering/Resolving]
  - Fatigue [Recovering/Resolving]
